FAERS Safety Report 10146437 (Version 1)
Quarter: 2014Q2

REPORT INFORMATION
  Report Type: Spontaneous
  Country: BR (occurrence: BR)
  Receive Date: 20140501
  Receipt Date: 20140501
  Transmission Date: 20141212
  Serious: Yes (Other)
  Sender: FDA-Public Use
  Company Number: BR-PFIZER INC-2014118655

PATIENT
  Age: 48 Year
  Sex: Female

DRUGS (1)
  1. LYRICA [Suspect]
     Dosage: 1 CAPSULE OF 75 MG, DAILY
     Route: 048
     Dates: start: 20110428

REACTIONS (2)
  - Spinal disorder [Unknown]
  - Pain [Unknown]
